FAERS Safety Report 4435067-8 (Version None)
Quarter: 2004Q3

REPORT INFORMATION
  Report Type: 
  Country: None (occurrence: None)
  Receive Date: 20040827
  Receipt Date: 20040819
  Transmission Date: 20050211
  Serious: Yes (Other)
  Sender: FDA-Public Use
  Company Number: DE-JNJFOC-20040806945

PATIENT
  Age: 67 Year
  Sex: Female

DRUGS (1)
  1. RISPERDAL [Suspect]
     Route: 049

REACTIONS (1)
  - LEUKOPENIA [None]
